FAERS Safety Report 23515455 (Version 1)
Quarter: 2024Q1

REPORT INFORMATION
  Report Type: Spontaneous
  Country: PL (occurrence: PL)
  Receive Date: 20240213
  Receipt Date: 20240213
  Transmission Date: 20240410
  Serious: Yes (Hospitalization, Other)
  Sender: FDA-Public Use
  Company Number: PL-DMAXPROD-231107-01

PATIENT
  Age: 29 Year
  Sex: Male

DRUGS (8)
  1. BUPROPION HYDROCHLORIDE\NALTREXONE HYDROCHLORIDE [Interacting]
     Active Substance: BUPROPION HYDROCHLORIDE\NALTREXONE HYDROCHLORIDE
     Dosage: 2 TABLETS TWO TIMES A DAY
     Route: 065
  2. BUPROPION HYDROCHLORIDE\NALTREXONE HYDROCHLORIDE [Interacting]
     Active Substance: BUPROPION HYDROCHLORIDE\NALTREXONE HYDROCHLORIDE
     Indication: Obesity
     Dosage: INITIALLY 1 TABLET TWO TIMES A DAY FOR 2 WEEKS
     Route: 065
  3. OMEPRAZOLE [Interacting]
     Active Substance: OMEPRAZOLE
     Indication: Eructation
     Dosage: 40.000MG QD
     Route: 065
  4. OMEPRAZOLE [Interacting]
     Active Substance: OMEPRAZOLE
     Indication: Oesophageal pain
  5. ACETAMINOPHEN [Interacting]
     Active Substance: ACETAMINOPHEN
     Indication: Headache
     Dosage: 4X1000 MG
     Route: 065
  6. SEMAGLUTIDE [Interacting]
     Active Substance: SEMAGLUTIDE
     Indication: Obesity
     Dosage: FOR THE FIRST 2 WEEKS OF NON-SURGICAL OBESITY TREATMENT.
     Route: 058
  7. SEMAGLUTIDE [Interacting]
     Active Substance: SEMAGLUTIDE
     Dosage: 1.000MG
     Route: 058
  8. SERTRALINE [Interacting]
     Active Substance: SERTRALINE HYDROCHLORIDE
     Indication: Depression
     Dosage: 100.000MG QD
     Route: 065

REACTIONS (2)
  - Drug interaction [Recovered/Resolved]
  - Oedematous pancreatitis [Recovered/Resolved]
